FAERS Safety Report 9737479 (Version 1)
Quarter: 2013Q4

REPORT INFORMATION
  Report Type: Spontaneous
  Country: US (occurrence: US)
  Receive Date: 20131206
  Receipt Date: 20131206
  Transmission Date: 20140711
  Serious: Yes (Death, Hospitalization)
  Sender: FDA-Public Use
  Company Number: US-ASTRAZENECA-2013SE89031

PATIENT
  Age: 55 Year
  Sex: Male

DRUGS (6)
  1. BRILINTA [Suspect]
     Indication: ELECTROCARDIOGRAM ST SEGMENT ELEVATION
     Route: 048
     Dates: start: 201311, end: 201312
  2. BRILINTA [Suspect]
     Indication: MYOCARDIAL INFARCTION
     Route: 048
     Dates: start: 201311, end: 201312
  3. HEPARIN [Concomitant]
  4. ANGIOMAX [Concomitant]
  5. CLOPIDOGREL [Concomitant]
  6. EFFIENT [Concomitant]

REACTIONS (5)
  - Acute myocardial infarction [Fatal]
  - Arterial restenosis [Fatal]
  - Platelet count increased [Fatal]
  - Haemorrhage [Fatal]
  - Gastrointestinal haemorrhage [Unknown]
